FAERS Safety Report 4511665-8 (Version None)
Quarter: 2004Q4

REPORT INFORMATION
  Report Type: 
  Country: None (occurrence: None)
  Receive Date: 20041123
  Receipt Date: 20041123
  Transmission Date: 20050328
  Serious: Yes (Hospitalization, Other)
  Sender: FDA-Public Use
  Company Number: None

PATIENT
  Weight: 64.8644 kg

DRUGS (1)
  1. MIRENA [Suspect]
     Indication: CONTRACEPTION

REACTIONS (5)
  - ABDOMINAL DISTENSION [None]
  - ALOPECIA [None]
  - HYPERTROPHY BREAST [None]
  - MIGRAINE [None]
  - WEIGHT INCREASED [None]
